FAERS Safety Report 23253775 (Version 3)
Quarter: 2025Q2

REPORT INFORMATION
  Report Type: Report from Study
  Country: CA (occurrence: CA)
  Receive Date: 20231202
  Receipt Date: 20250513
  Transmission Date: 20250716
  Serious: Yes (Other)
  Sender: ROCHE
  Company Number: CA-002147023-PHHY2018CA173383

PATIENT
  Age: 27 Year
  Sex: Female
  Weight: 120.0 kg

DRUGS (15)
  1. XOLAIR [Suspect]
     Active Substance: OMALIZUMAB
     Indication: Chronic spontaneous urticaria
     Route: 058
     Dates: start: 20181127
  2. XOLAIR [Suspect]
     Active Substance: OMALIZUMAB
     Indication: Intervertebral disc protrusion
     Route: 058
     Dates: start: 20181128
  3. XOLAIR [Suspect]
     Active Substance: OMALIZUMAB
     Route: 058
     Dates: start: 20200115
  4. XOLAIR [Suspect]
     Active Substance: OMALIZUMAB
     Route: 058
  5. XOLAIR [Suspect]
     Active Substance: OMALIZUMAB
     Route: 058
     Dates: start: 20230314
  6. XOLAIR [Suspect]
     Active Substance: OMALIZUMAB
     Route: 058
  7. XOLAIR [Suspect]
     Active Substance: OMALIZUMAB
     Route: 058
  8. XOLAIR [Suspect]
     Active Substance: OMALIZUMAB
     Route: 058
     Dates: start: 20240509
  9. PREDNISONE [Concomitant]
     Active Substance: PREDNISONE
     Indication: Product used for unknown indication
     Route: 048
     Dates: start: 2013
  10. TRI-PREVIFEM [Concomitant]
     Active Substance: ETHINYL ESTRADIOL\NORGESTIMATE
     Indication: Product used for unknown indication
     Dosage: 1 DF, QD
     Route: 048
     Dates: start: 2006
  11. ZENHALE [Concomitant]
     Active Substance: FORMOTEROL FUMARATE\MOMETASONE FUROATE
     Indication: Asthma
     Route: 065
  12. RUPATADINE FUMARATE [Concomitant]
     Active Substance: RUPATADINE FUMARATE
     Indication: Product used for unknown indication
     Dosage: 2 DF, BID
     Route: 048
     Dates: start: 20181003
  13. PREVACID [Concomitant]
     Active Substance: LANSOPRAZOLE
     Indication: Product used for unknown indication
     Dosage: 1 DF, QD
     Route: 048
     Dates: start: 201807
  14. FLONASE [Concomitant]
     Active Substance: FLUTICASONE PROPIONATE
     Indication: Product used for unknown indication
     Route: 045
     Dates: start: 2016
  15. SAXENDA [Concomitant]
     Active Substance: LIRAGLUTIDE
     Indication: Product used for unknown indication
     Dates: start: 20240510, end: 20240514

REACTIONS (32)
  - Urticaria [Recovering/Resolving]
  - Throat tightness [Unknown]
  - Lower respiratory tract infection [Unknown]
  - Malaise [Unknown]
  - Injection site irritation [Recovered/Resolved]
  - Injection site bruising [Recovered/Resolved]
  - Ligament sprain [Unknown]
  - Abdominal pain upper [Unknown]
  - Head discomfort [Unknown]
  - Eye swelling [Unknown]
  - Back injury [Unknown]
  - Weight increased [Unknown]
  - Intervertebral disc protrusion [Unknown]
  - Migraine [Unknown]
  - Visual field defect [Unknown]
  - Visual impairment [Unknown]
  - Stress [Unknown]
  - Nausea [Unknown]
  - Vision blurred [Unknown]
  - Headache [Not Recovered/Not Resolved]
  - Oropharyngeal pain [Unknown]
  - Nasal congestion [Unknown]
  - Cough [Unknown]
  - Pruritus [Unknown]
  - Nasopharyngitis [Unknown]
  - Urticaria [Recovered/Resolved]
  - Product dose omission issue [Unknown]
  - Product use issue [Unknown]
  - Drug hypersensitivity [Recovering/Resolving]
  - Injection site reaction [Recovering/Resolving]
  - Dyspnoea [Unknown]
  - Drug ineffective [Unknown]

NARRATIVE: CASE EVENT DATE: 20181127
